FAERS Safety Report 17690247 (Version 1)
Quarter: 2020Q2

REPORT INFORMATION
  Report Type: Report from Study
  Country: CA (occurrence: CA)
  Receive Date: 20200421
  Receipt Date: 20200421
  Transmission Date: 20200714
  Serious: Yes (Other)
  Sender: FDA-Public Use
  Company Number: PHHY2017CA031638

PATIENT
  Age: 57 Year
  Sex: Male

DRUGS (2)
  1. GILENYA [Suspect]
     Active Substance: FINGOLIMOD HYDROCHLORIDE
     Indication: PRODUCT USED FOR UNKNOWN INDICATION
     Dosage: UNK
     Route: 048
     Dates: start: 20151117
  2. TIZANIDINE. [Concomitant]
     Active Substance: TIZANIDINE
     Indication: PRODUCT USED FOR UNKNOWN INDICATION
     Dosage: 2 TBL IN AM, 2 TBL WITH SUPPER AND 3 TBL AT MIDNIGHT
     Route: 065

REACTIONS (6)
  - Progressive multifocal leukoencephalopathy [Unknown]
  - Infection [Unknown]
  - Myocardial infarction [Unknown]
  - Dizziness [Unknown]
  - Seizure [Unknown]
  - Extra dose administered [Unknown]

NARRATIVE: CASE EVENT DATE: 20170224
